FAERS Safety Report 5084385-1 (Version None)
Quarter: 2006Q3

REPORT INFORMATION
  Report Type: 
  Country: None (occurrence: None)
  Receive Date: 20060817
  Receipt Date: 20060817
  Transmission Date: 20061208
  Serious: Yes (Life-Threatening)
  Sender: FDA-Public Use
  Company Number: None

PATIENT
  Age: 67 Year
  Sex: Female
  Weight: 116 kg

DRUGS (1)
  1. AVASTIN [Suspect]
     Indication: LUNG CANCER METASTATIC
     Dosage: 1860MG ONE TIME IV
     Route: 042
     Dates: start: 20050902, end: 20050902

REACTIONS (2)
  - DYSPNOEA [None]
  - TRANSIENT ISCHAEMIC ATTACK [None]
